FAERS Safety Report 24967800 (Version 2)
Quarter: 2025Q2

REPORT INFORMATION
  Report Type: Report from Study
  Country: DE (occurrence: DE)
  Receive Date: 20250214
  Receipt Date: 20250606
  Transmission Date: 20250717
  Serious: Yes (Other)
  Sender: CELLTRION
  Company Number: DE-ROCHE-3522620

PATIENT

DRUGS (6)
  1. RITUXIMAB [Suspect]
     Active Substance: RITUXIMAB
     Indication: Neuromyelitis optica spectrum disorder
     Route: 041
     Dates: start: 202302, end: 202308
  2. TOCILIZUMAB [Suspect]
     Active Substance: TOCILIZUMAB
     Indication: Neuromyelitis optica spectrum disorder
     Dosage: SHE RECEIVED SUBSEQUENT DOSES ON APR/2024, MAY/2024, JUN/2024, JUL/2024, AUG/2024
     Route: 042
  3. IBUPROFEN [Concomitant]
     Active Substance: IBUPROFEN
  4. NOVALGIN (METAMIZOLE SODIUM) [Concomitant]
     Active Substance: METAMIZOLE SODIUM
  5. GABAPENTIN [Concomitant]
     Active Substance: GABAPENTIN
  6. VITAMIN D3 [Concomitant]
     Active Substance: CHOLECALCIFEROL

REACTIONS (6)
  - Spinal cord neoplasm [Not Recovered/Not Resolved]
  - Fall [Unknown]
  - Illness [Recovered/Resolved]
  - Acne [Recovered/Resolved]
  - Off label use [Unknown]
  - Off label use [Unknown]

NARRATIVE: CASE EVENT DATE: 20230201
